FAERS Safety Report 16347049 (Version 1)
Quarter: 2019Q2

REPORT INFORMATION
  Report Type: Spontaneous
  Country: US (occurrence: US)
  Receive Date: 20190523
  Receipt Date: 20190523
  Transmission Date: 20190711
  Serious: No
  Sender: FDA-Public Use
  Company Number: US-TARO-2018TAR00517

PATIENT
  Sex: Female

DRUGS (3)
  1. VAGISIL ANTI ITCH ORIGINAL STRENGTH [Suspect]
     Active Substance: BENZOCAINE\RESORCINOL
     Route: 061
  2. MICONAZOLE. [Suspect]
     Active Substance: MICONAZOLE
     Route: 061
  3. CLOTRIMAZOLE VAGINAL CREAM USP 2% 3 DAY [Suspect]
     Active Substance: CLOTRIMAZOLE
     Dosage: UNK
     Route: 067
     Dates: start: 20180709

REACTIONS (3)
  - Drug interaction [Unknown]
  - Application site irritation [Recovered/Resolved]
  - Application site pain [Recovered/Resolved]

NARRATIVE: CASE EVENT DATE: 20180709
